FAERS Safety Report 25680579 (Version 1)
Quarter: 2025Q3

REPORT INFORMATION
  Report Type: Spontaneous
  Country: JP (occurrence: JP)
  Receive Date: 20250814
  Receipt Date: 20250814
  Transmission Date: 20251020
  Serious: Yes (Hospitalization, Other)
  Sender: MERCK SHARP & DOHME LLC
  Company Number: JP-009507513-2317222

PATIENT
  Age: 67 Year
  Sex: Male
  Weight: 58.3 kg

DRUGS (7)
  1. KEYTRUDA [Suspect]
     Active Substance: PEMBROLIZUMAB
     Indication: Clear cell renal cell carcinoma
     Route: 041
     Dates: start: 202305, end: 202402
  2. VOTRIENT [Suspect]
     Active Substance: PAZOPANIB HYDROCHLORIDE
     Indication: Renal cell carcinoma recurrent
     Dosage: STRENGTH: 200 MG
     Route: 048
     Dates: start: 20250109, end: 20250306
  3. LIDOCAINE\TRIBENOSIDE [Concomitant]
     Active Substance: LIDOCAINE\TRIBENOSIDE
     Route: 065
  4. PREDONINE [Concomitant]
     Active Substance: PREDNISOLONE
     Dosage: STRENGTH:5 MG
     Route: 048
     Dates: start: 20240515, end: 20250206
  5. PREDONINE [Concomitant]
     Active Substance: PREDNISOLONE
     Dosage: STRENGTH:5 MG
     Route: 048
     Dates: start: 202402, end: 20240514
  6. PREDONINE [Concomitant]
     Active Substance: PREDNISOLONE
     Dosage: STRENGTH:5 MG
     Route: 048
     Dates: start: 20250207
  7. HAEMOLEX [Concomitant]
     Route: 065

REACTIONS (2)
  - Immune-mediated hepatic disorder [Recovered/Resolved]
  - Pemphigoid [Unknown]

NARRATIVE: CASE EVENT DATE: 20240201
